FAERS Safety Report 6790770-X (Version None)
Quarter: 2010Q2

REPORT INFORMATION
  Report Type: 
  Country: None (occurrence: None)
  Receive Date: 20100624
  Receipt Date: 20100621
  Transmission Date: 20101027
  Serious: Yes (Hospitalization)
  Sender: FDA-Public Use
  Company Number: US-RB-008207-10

PATIENT
  Age: 46 Year
  Sex: Female

DRUGS (1)
  1. SUBOXONE [Suspect]
     Indication: DRUG USE FOR UNKNOWN INDICATION
     Dosage: DOSING DETAILS UNKNOWN
     Route: 065

REACTIONS (4)
  - INFECTION [None]
  - JOINT SWELLING [None]
  - OEDEMA PERIPHERAL [None]
  - PRURITUS GENERALISED [None]
